FAERS Safety Report 10486013 (Version 1)
Quarter: 2014Q4

REPORT INFORMATION
  Report Type: Spontaneous
  Country: US (occurrence: US)
  Receive Date: 20141001
  Receipt Date: 20141001
  Transmission Date: 20150528
  Serious: Yes (Other)
  Sender: FDA-Public Use
  Company Number: US-ASTRAZENECA-2014SE72713

PATIENT
  Sex: Male
  Weight: 88.5 kg

DRUGS (5)
  1. LASIX [Concomitant]
     Active Substance: FUROSEMIDE
  2. POTASSIUM CL ER [Concomitant]
  3. TAMSULOSIN [Concomitant]
     Active Substance: TAMSULOSIN
     Indication: POLYURIA
  4. SYMBICORT [Suspect]
     Active Substance: BUDESONIDE\FORMOTEROL FUMARATE DIHYDRATE
     Indication: DYSPNOEA
     Dosage: 160/4.5MCG 2 PUFFS TWICE A DAY
     Route: 055
  5. NAMENBA XR [Concomitant]

REACTIONS (2)
  - Myocardial infarction [Unknown]
  - Pneumothorax [Unknown]
